FAERS Safety Report 5495393-0 (Version None)
Quarter: 2007Q4

REPORT INFORMATION
  Report Type: 
  Country: None (occurrence: None)
  Receive Date: 20071024
  Receipt Date: 20071012
  Transmission Date: 20080405
  Serious: Yes (Death)
  Sender: FDA-Public Use
  Company Number: US-PFIZER INC-2007085675

PATIENT
  Age: 45 Year
  Sex: Male

DRUGS (3)
  1. GEODON [Suspect]
     Dosage: DAILY DOSE:40MG
  2. CYMBALTA [Suspect]
  3. WELLBUTRIN [Suspect]

REACTIONS (1)
  - DEATH [None]
